FAERS Safety Report 17869721 (Version 1)
Quarter: 2020Q2

REPORT INFORMATION
  Report Type: Spontaneous
  Country: US (occurrence: US)
  Receive Date: 20200608
  Receipt Date: 20200608
  Transmission Date: 20200714
  Serious: Yes (Other)
  Sender: FDA-Public Use
  Company Number: US-SA-2020SA144837

PATIENT

DRUGS (5)
  1. AVAPRO [Suspect]
     Active Substance: IRBESARTAN
     Indication: HYPERTENSION
     Dosage: 75 MG, QD
  2. LEXAPRO [Concomitant]
     Active Substance: ESCITALOPRAM OXALATE
  3. AVAPRO [Suspect]
     Active Substance: IRBESARTAN
     Dosage: 300 MG, QD
  4. METFORMIN [Concomitant]
     Active Substance: METFORMIN HYDROCHLORIDE
  5. AVAPRO [Suspect]
     Active Substance: IRBESARTAN
     Dosage: 150 MG, QD

REACTIONS (8)
  - Dysuria [Not Recovered/Not Resolved]
  - Pollakiuria [Not Recovered/Not Resolved]
  - Blood pressure increased [Not Recovered/Not Resolved]
  - Dyspnoea [Not Recovered/Not Resolved]
  - Anxiety [Not Recovered/Not Resolved]
  - Albumin urine present [Not Recovered/Not Resolved]
  - Pneumonia [Not Recovered/Not Resolved]
  - Micturition urgency [Not Recovered/Not Resolved]
